FAERS Safety Report 17404104 (Version 1)
Quarter: 2020Q1

REPORT INFORMATION
  Report Type: Spontaneous
  Country: FR (occurrence: FR)
  Receive Date: 20200211
  Receipt Date: 20200211
  Transmission Date: 20200409
  Serious: Yes (Life-Threatening)
  Sender: FDA-Public Use
  Company Number: FR-009507513-2002FRA001000

PATIENT
  Age: 85 Year
  Sex: Male
  Weight: 62 kg

DRUGS (5)
  1. MONOPROST [Concomitant]
     Active Substance: LATANOPROST
     Dosage: UNK
  2. NOXAFIL [Suspect]
     Active Substance: POSACONAZOLE
     Indication: CEREBRAL ASPERGILLOSIS
     Dosage: 400 MILLIGRAM, QD
     Route: 048
     Dates: start: 20191105, end: 20200109
  3. ALPHAGAN P [Concomitant]
     Active Substance: BRIMONIDINE TARTRATE
     Dosage: UNK
  4. BRINZOLAMIDE [Concomitant]
     Active Substance: BRINZOLAMIDE
     Dosage: UNK
  5. BISOPROLOL FUMARATE. [Concomitant]
     Active Substance: BISOPROLOL FUMARATE
     Dosage: UNK

REACTIONS (3)
  - Hepatitis fulminant [Recovering/Resolving]
  - Acute kidney injury [Recovering/Resolving]
  - Hallucination [Recovered/Resolved]

NARRATIVE: CASE EVENT DATE: 20200105
